FAERS Safety Report 5416297-5 (Version None)
Quarter: 2007Q3

REPORT INFORMATION
  Report Type: 
  Country: None (occurrence: None)
  Receive Date: 20070718
  Receipt Date: 20060803
  Transmission Date: 20080115
  Serious: Yes (Hospitalization)
  Sender: FDA-Public Use
  Company Number: 2006014047

PATIENT
  Age: 49 Year
  Sex: Female
  Weight: 80.7403 kg

DRUGS (2)
  1. CELEBREX [Suspect]
     Indication: FIBROMYALGIA
     Dosage: 100-200MG (1OR 2 TIMES DAILY), ORAL
     Route: 048
     Dates: start: 20030215
  2. LEVOTHYROXINE SODIUM [Concomitant]

REACTIONS (1)
  - MYOCARDIAL INFARCTION [None]
